FAERS Safety Report 5666754-1 (Version None)
Quarter: 2008Q1

REPORT INFORMATION
  Report Type: 
  Country: None (occurrence: None)
  Receive Date: 20080315
  Receipt Date: 20080110
  Transmission Date: 20080703
  Serious: Yes (Other)
  Sender: FDA-Public Use
  Company Number: PR-ABBOTT-08P-131-0432800-00

PATIENT
  Sex: Female

DRUGS (5)
  1. HUMIRA [Suspect]
     Indication: RHEUMATOID ARTHRITIS
     Route: 058
     Dates: start: 20071228
  2. ATACAND HTZ [Concomitant]
     Indication: HYPERTENSION
     Dosage: 16/12.5
     Route: 048
  3. METOPROLOL TARTRATE [Concomitant]
     Indication: HYPERTENSION
     Route: 048
  4. INEGY [Concomitant]
     Indication: HYPERCHOLESTEROLAEMIA
     Route: 048
  5. ACETAMINOPHEN W/ CODEINE [Concomitant]
     Indication: PAIN
     Route: 048

REACTIONS (5)
  - HYPERSENSITIVITY [None]
  - INJECTION SITE ERYTHEMA [None]
  - INJECTION SITE HAEMATOMA [None]
  - INJECTION SITE INFLAMMATION [None]
  - INJECTION SITE WARMTH [None]
